FAERS Safety Report 4808834-6 (Version None)
Quarter: 2005Q4

REPORT INFORMATION
  Report Type: 
  Country: None (occurrence: None)
  Receive Date: 20051021
  Receipt Date: 20030106
  Transmission Date: 20060501
  Serious: No
  Sender: FDA-Public Use
  Company Number: DE_030110456

PATIENT
  Age: 39 Year
  Sex: Male
  Weight: 76 kg

DRUGS (2)
  1. ZYPREXA [Suspect]
     Indication: SCHIZOPHRENIA
     Dosage: 10 MG/DAY
     Dates: start: 20010901
  2. FLUOXETINE [Concomitant]

REACTIONS (3)
  - LEUKOCYTOSIS [None]
  - SHIFT TO THE LEFT [None]
  - WEIGHT INCREASED [None]
